FAERS Safety Report 23636848 (Version 1)
Quarter: 2024Q1

REPORT INFORMATION
  Report Type: Spontaneous
  Country: US (occurrence: US)
  Receive Date: 20240315
  Receipt Date: 20240315
  Transmission Date: 20240410
  Serious: Yes (Other)
  Sender: FDA-Public Use
  Company Number: US-ELI_LILLY_AND_COMPANY-US202403004083

PATIENT
  Age: 62 Year
  Sex: Female

DRUGS (3)
  1. HUMALOG [Suspect]
     Active Substance: INSULIN LISPRO
     Indication: Product used for unknown indication
     Dosage: UNK UNK, UNKNOWN
     Route: 065
  2. HUMALOG [Suspect]
     Active Substance: INSULIN LISPRO
     Dosage: UNK UNK, UNKNOWN
     Route: 065
  3. LEVEMIR [Concomitant]
     Active Substance: INSULIN DETEMIR
     Indication: Diabetes mellitus
     Dosage: UNK UNK, UNKNOWN
     Route: 065

REACTIONS (11)
  - Hernia [Unknown]
  - Carpal tunnel syndrome [Unknown]
  - Fibromyalgia [Not Recovered/Not Resolved]
  - Sciatica [Not Recovered/Not Resolved]
  - Rheumatoid arthritis [Not Recovered/Not Resolved]
  - Tendonitis [Not Recovered/Not Resolved]
  - Neuropathy peripheral [Not Recovered/Not Resolved]
  - Pain [Not Recovered/Not Resolved]
  - Expired product administered [Unknown]
  - COVID-19 [Recovered/Resolved]
  - Injection site pain [Unknown]
